FAERS Safety Report 18035806 (Version 1)
Quarter: 2020Q3

REPORT INFORMATION
  Report Type: Spontaneous
  Country: US (occurrence: US)
  Receive Date: 20200717
  Receipt Date: 20200717
  Transmission Date: 20201103
  Serious: No
  Sender: FDA-Public Use
  Company Number: None

PATIENT
  Age: 41 Year
  Sex: Female
  Weight: 96.75 kg

DRUGS (3)
  1. LEFLUNOMIDE. [Concomitant]
     Active Substance: LEFLUNOMIDE
  2. DULOXETINE. [Concomitant]
     Active Substance: DULOXETINE
  3. CIMZIA [Suspect]
     Active Substance: CERTOLIZUMAB PEGOL
     Indication: RHEUMATOID ARTHRITIS
     Dates: start: 20200623

REACTIONS (4)
  - Oropharyngeal pain [None]
  - Pharyngeal erythema [None]
  - Odynophagia [None]
  - Diarrhoea [None]

NARRATIVE: CASE EVENT DATE: 20200717
